FAERS Safety Report 7166796-3 (Version None)
Quarter: 2010Q4

REPORT INFORMATION
  Report Type: 
  Country: None (occurrence: None)
  Receive Date: 20101203
  Receipt Date: 20101122
  Transmission Date: 20110411
  Serious: Yes (Hospitalization, Other)
  Sender: FDA-Public Use
  Company Number: 10-001633

PATIENT
  Age: 17 Year
  Sex: Male
  Weight: 68 kg

DRUGS (1)
  1. DORYX [Suspect]
     Indication: ACNE
     Dosage: 150 MG, QD, ORAL
     Route: 048
     Dates: start: 20100919

REACTIONS (3)
  - AUTOIMMUNE HEPATITIS [None]
  - BILE DUCT STENOSIS [None]
  - WEIGHT DECREASED [None]
